FAERS Safety Report 7239386-1 (Version None)
Quarter: 2011Q1

REPORT INFORMATION
  Report Type: 
  Country: None (occurrence: None)
  Receive Date: 20110121
  Receipt Date: 20110119
  Transmission Date: 20110831
  Serious: Yes (Other)
  Sender: FDA-Public Use
  Company Number: US-AMGEN-USASP2011002329

PATIENT

DRUGS (5)
  1. CYCLOPHOSPHAMIDE [Concomitant]
  2. NPLATE [Suspect]
     Indication: IDIOPATHIC THROMBOCYTOPENIC PURPURA
     Dosage: 7 A?G/KG, UNK
     Dates: start: 20100816, end: 20101004
  3. RITUXIMAB [Concomitant]
  4. CORTICOSTEROIDS [Concomitant]
  5. CYCLOSPORINE [Concomitant]

REACTIONS (3)
  - MYELOFIBROSIS [None]
  - DRUG INEFFECTIVE [None]
  - ACUTE MYELOID LEUKAEMIA [None]
